FAERS Safety Report 7084580-6 (Version None)
Quarter: 2010Q4

REPORT INFORMATION
  Report Type: 
  Country: None (occurrence: None)
  Receive Date: 20101104
  Receipt Date: 20101028
  Transmission Date: 20110411
  Serious: Yes (Death)
  Sender: FDA-Public Use
  Company Number: PL-PFIZER INC-2010137819

PATIENT
  Age: 31 Year
  Sex: Female

DRUGS (9)
  1. ZYVOX [Suspect]
  2. UNASYN [Suspect]
  3. VFEND [Suspect]
  4. CIPROFLOXACIN [Suspect]
  5. METRONIDAZOLE [Suspect]
  6. TYGACIL [Suspect]
  7. NISTATIN [Suspect]
     Route: 067
  8. TARGOCID [Suspect]
  9. TAMIFLU [Suspect]

REACTIONS (1)
  - DRUG INEFFECTIVE [None]
